FAERS Safety Report 12079694 (Version 2)
Quarter: 2016Q1

REPORT INFORMATION
  Report Type: Spontaneous
  Country: US (occurrence: US)
  Receive Date: 20160216
  Receipt Date: 20160217
  Transmission Date: 20160526
  Serious: Yes (Other)
  Sender: FDA-Public Use
  Company Number: US-PFIZER INC-2016085146

PATIENT
  Age: 55 Year
  Sex: Female
  Weight: 99.79 kg

DRUGS (6)
  1. METFORMIN [Concomitant]
     Active Substance: METFORMIN HYDROCHLORIDE
     Indication: DIABETES MELLITUS
     Dosage: 1000 MG, 2X/DAY
  2. TRAZODONE [Concomitant]
     Active Substance: TRAZODONE HYDROCHLORIDE
     Dosage: 100 MG, UNK
  3. GEODON [Suspect]
     Active Substance: ZIPRASIDONE HYDROCHLORIDE\ZIPRASIDONE MESYLATE
     Indication: DEPRESSION
  4. FENOFIBRATE. [Concomitant]
     Active Substance: FENOFIBRATE
     Dosage: 160 MG, UNK
  5. FENOFIBRATE. [Concomitant]
     Active Substance: FENOFIBRATE
     Indication: BLOOD PRESSURE ABNORMAL
     Dosage: 150 MG, DAILY
  6. GEODON [Suspect]
     Active Substance: ZIPRASIDONE HYDROCHLORIDE\ZIPRASIDONE MESYLATE
     Indication: BIPOLAR DISORDER
     Dosage: 120 MG, 1X/DAY
     Dates: start: 2007

REACTIONS (6)
  - Blood glucose increased [Unknown]
  - Diabetes mellitus [Not Recovered/Not Resolved]
  - Anxiety [Unknown]
  - Drug withdrawal syndrome [Not Recovered/Not Resolved]
  - Disturbance in attention [Unknown]
  - Mental disorder [Unknown]
